FAERS Safety Report 7809477-2 (Version None)
Quarter: 2011Q4

REPORT INFORMATION
  Report Type: 
  Country: None (occurrence: None)
  Receive Date: 20111012
  Receipt Date: 20110928
  Transmission Date: 20120403
  Serious: Yes (Hospitalization)
  Sender: FDA-Public Use
  Company Number: PHHY2011EC89445

PATIENT
  Sex: Female

DRUGS (4)
  1. DIOVAN [Suspect]
     Indication: HYPERTENSION
     Dosage: 80 MG, DAILY
     Route: 048
  2. DIOVAN HCT [Suspect]
     Indication: HYPERTENSION
     Dosage: 1 DF (160/12.5MG) DAILY
     Route: 048
     Dates: start: 20070101
  3. DIOVAN HCT [Suspect]
     Dosage: 1 DF (160/12.5MG) DAILY
  4. DIOVAN HCT [Suspect]
     Dosage: 1 DF (160/25MG) DAILY

REACTIONS (2)
  - HERNIA [None]
  - CONDITION AGGRAVATED [None]
